FAERS Safety Report 9772082 (Version 1)
Quarter: 2013Q4

REPORT INFORMATION
  Report Type: Spontaneous
  Country: US (occurrence: US)
  Receive Date: 20131219
  Receipt Date: 20131219
  Transmission Date: 20140711
  Serious: Yes (Other)
  Sender: FDA-Public Use
  Company Number: US-JNJFOC-20131209542

PATIENT
  Age: 42 Year
  Sex: Male

DRUGS (2)
  1. REMICADE [Suspect]
     Indication: ANKYLOSING SPONDYLITIS
     Dosage: HAS BEEN ON INFLIXIMAB FOR ATLEAST 2 YEARS
     Route: 042
     Dates: end: 2013
  2. REMICADE [Suspect]
     Indication: RHEUMATOID ARTHRITIS
     Dosage: HAS BEEN ON INFLIXIMAB FOR ATLEAST 2 YEARS
     Route: 042
     Dates: end: 2013

REACTIONS (1)
  - Castleman^s disease [Unknown]
